FAERS Safety Report 12146413 (Version 1)
Quarter: 2016Q1

REPORT INFORMATION
  Report Type: Spontaneous
  Country: BE (occurrence: BE)
  Receive Date: 20160304
  Receipt Date: 20160304
  Transmission Date: 20160526
  Serious: Yes (Hospitalization, Other)
  Sender: FDA-Public Use
  Company Number: BE-SEBELA IRELAND LIMITED-2016SEB00020

PATIENT
  Age: 37 Year
  Sex: Male

DRUGS (2)
  1. AZATHIOPRINE. [Suspect]
     Active Substance: AZATHIOPRINE
     Dosage: 2 MG/KG
     Route: 065
     Dates: start: 2007
  2. AZATHIOPRINE. [Suspect]
     Active Substance: AZATHIOPRINE
     Indication: COLITIS
     Dosage: 2 MG/KG, UNK
     Route: 065
     Dates: start: 200505, end: 200512

REACTIONS (5)
  - Pancytopenia [Recovered/Resolved]
  - Gastric haemorrhage [Unknown]
  - Nodular regenerative hyperplasia [Unknown]
  - Portal hypertension [Unknown]
  - Varices oesophageal [Unknown]

NARRATIVE: CASE EVENT DATE: 2007
